FAERS Safety Report 15814621 (Version 2)
Quarter: 2019Q1

REPORT INFORMATION
  Report Type: Report from Study
  Country: FI (occurrence: FI)
  Receive Date: 20190111
  Receipt Date: 20190326
  Transmission Date: 20190417
  Serious: Yes (Hospitalization)
  Sender: FDA-Public Use
  Company Number: FI-BIOGEN-2018BI00636406

PATIENT
  Age: 38 Year
  Sex: Female

DRUGS (2)
  1. TECFIDERA [Suspect]
     Active Substance: DIMETHYL FUMARATE
     Route: 050
     Dates: start: 201809
  2. TECFIDERA [Suspect]
     Active Substance: DIMETHYL FUMARATE
     Indication: MULTIPLE SCLEROSIS
     Route: 050
     Dates: start: 201809

REACTIONS (12)
  - Abdominal pain upper [Recovered/Resolved]
  - Alopecia [Not Recovered/Not Resolved]
  - Diarrhoea [Not Recovered/Not Resolved]
  - Wound decomposition [Unknown]
  - Mucosal dryness [Unknown]
  - Rash pruritic [Unknown]
  - Pruritus [Not Recovered/Not Resolved]
  - Flushing [Unknown]
  - Feeling hot [Unknown]
  - Rash [Unknown]
  - Influenza [Unknown]
  - Erythema [Not Recovered/Not Resolved]
